FAERS Safety Report 16415648 (Version 2)
Quarter: 2019Q4

REPORT INFORMATION
  Report Type: Spontaneous
  Country: US (occurrence: US)
  Receive Date: 20190611
  Receipt Date: 20191211
  Transmission Date: 20200122
  Serious: No
  Sender: FDA-Public Use
  Company Number: US-SA-2019SA155392

PATIENT
  Age: 37 Year
  Sex: Female

DRUGS (3)
  1. TRIAMTERENE/HYDROCHLOROTHIAZIDE [Concomitant]
     Active Substance: HYDROCHLOROTHIAZIDE\TRIAMTERENE
  2. PREDNISONE. [Concomitant]
     Active Substance: PREDNISONE
  3. DUPIXENT [Suspect]
     Active Substance: DUPILUMAB
     Indication: DERMATITIS ATOPIC
     Dosage: 300 MG, QOW
     Route: 058
     Dates: start: 20190416

REACTIONS (2)
  - Eye irritation [Not Recovered/Not Resolved]
  - Dermatitis atopic [Unknown]

NARRATIVE: CASE EVENT DATE: 2019
